FAERS Safety Report 8159177-7 (Version None)
Quarter: 2012Q1

REPORT INFORMATION
  Report Type: 
  Country: None (occurrence: None)
  Receive Date: 20120223
  Receipt Date: 20120216
  Transmission Date: 20120608
  Serious: Yes (Other)
  Sender: FDA-Public Use
  Company Number: GB-JNJFOC-20111103547

PATIENT
  Sex: Female
  Weight: 65.8 kg

DRUGS (6)
  1. VELCADE [Suspect]
     Indication: MULTIPLE MYELOMA
     Route: 040
     Dates: start: 20110811, end: 20110818
  2. FENTANYL [Suspect]
     Route: 062
     Dates: start: 20110919
  3. FENTANYL [Suspect]
     Indication: PRODUCT USED FOR UNKNOWN INDICATION
     Route: 062
  4. VELCADE [Suspect]
     Route: 040
     Dates: end: 20110919
  5. VELCADE [Suspect]
     Route: 040
     Dates: start: 20110606, end: 20110808
  6. VELCADE [Suspect]
     Route: 040
     Dates: start: 20110912

REACTIONS (6)
  - PARAESTHESIA [None]
  - AUTONOMIC NEUROPATHY [None]
  - FALL [None]
  - DIZZINESS [None]
  - VISUAL IMPAIRMENT [None]
  - NEUROPATHY PERIPHERAL [None]
